FAERS Safety Report 14846577 (Version 1)
Quarter: 2018Q2

REPORT INFORMATION
  Report Type: Spontaneous
  Country: US (occurrence: US)
  Receive Date: 20180418
  Receipt Date: 20180418
  Transmission Date: 20180711
  Serious: Yes (Death)
  Sender: FDA-Public Use
  Company Number: None

PATIENT
  Sex: Male

DRUGS (1)
  1. ENTECAVIR 1MG TAB [Suspect]
     Active Substance: ENTECAVIR
     Indication: HEPATITIS B
     Dosage: DECEASED
     Route: 048
     Dates: start: 20180210

REACTIONS (1)
  - Death [None]
